FAERS Safety Report 8177852-5 (Version None)
Quarter: 2012Q1

REPORT INFORMATION
  Report Type: 
  Country: None (occurrence: None)
  Receive Date: 20120126
  Receipt Date: 20111223
  Transmission Date: 20120608
  Serious: No
  Sender: FDA-Public Use
  Company Number: PHEH2011US012485

PATIENT
  Age: 12 Year
  Sex: Female

DRUGS (2)
  1. AFINITOR [Suspect]
     Indication: ASTROCYTOMA
     Dosage: ORAL : 7.5 MG DAILY, ORAL
     Route: 048
     Dates: start: 20110901
  2. TRILEPTAL [Concomitant]

REACTIONS (1)
  - BRUXISM [None]
